FAERS Safety Report 22533133 (Version 4)
Quarter: 2023Q4

REPORT INFORMATION
  Report Type: Spontaneous
  Country: US (occurrence: US)
  Receive Date: 20230607
  Receipt Date: 20231222
  Transmission Date: 20240110
  Serious: Yes (Hospitalization, Other)
  Sender: FDA-Public Use
  Company Number: US-BRISTOL-MYERS SQUIBB COMPANY-2023-080094

PATIENT
  Age: 71 Year
  Sex: Male

DRUGS (2)
  1. POMALYST [Suspect]
     Active Substance: POMALIDOMIDE
     Indication: Plasma cell myeloma
     Dosage: DAILY
     Route: 048
     Dates: start: 202205
  2. POMALYST [Suspect]
     Active Substance: POMALIDOMIDE
     Dosage: FREQUENCY OTHER
     Route: 048

REACTIONS (7)
  - Pneumonia [Unknown]
  - COVID-19 [Unknown]
  - Neoplasm malignant [Unknown]
  - Fatigue [Unknown]
  - Pruritus [Recovered/Resolved]
  - Penis disorder [Unknown]
  - Influenza [Unknown]

NARRATIVE: CASE EVENT DATE: 20230501
